FAERS Safety Report 13213085 (Version 1)
Quarter: 2017Q1

REPORT INFORMATION
  Report Type: Spontaneous
  Country: US (occurrence: US)
  Receive Date: 20170209
  Receipt Date: 20170209
  Transmission Date: 20170428
  Serious: No
  Sender: FDA-Public Use
  Company Number: US-ALLERGAN-1673499US

PATIENT
  Sex: Female

DRUGS (2)
  1. BOTOX COSMETIC [Suspect]
     Active Substance: ONABOTULINUMTOXINA
     Indication: BROW PTOSIS
     Dosage: APPROX 15-18 UNITS
     Route: 030
     Dates: start: 20161007, end: 20161007
  2. REZULIN [Concomitant]
     Active Substance: TROGLITAZONE
     Indication: PRODUCT USED FOR UNKNOWN INDICATION

REACTIONS (2)
  - Lacrimation increased [Not Recovered/Not Resolved]
  - Off label use [Unknown]
